FAERS Safety Report 5187723-4 (Version None)
Quarter: 2006Q4

REPORT INFORMATION
  Report Type: 
  Country: None (occurrence: None)
  Receive Date: 20061214
  Receipt Date: 20061205
  Transmission Date: 20070319
  Serious: Yes (Other)
  Sender: FDA-Public Use
  Company Number: HQWYE536107DEC06

PATIENT
  Sex: Female

DRUGS (6)
  1. PREMPRO [Suspect]
  2. ACTIVELLA [Suspect]
  3. ESTRATAB [Suspect]
  4. MEDROXYPROGESTERONE [Suspect]
  5. PREMARIN [Suspect]
  6. PROVERA [Concomitant]

REACTIONS (1)
  - BREAST CANCER FEMALE [None]
